FAERS Safety Report 6233692-5 (Version None)
Quarter: 2009Q2

REPORT INFORMATION
  Report Type: 
  Country: None (occurrence: None)
  Receive Date: 20090617
  Receipt Date: 20090615
  Transmission Date: 20091009
  Serious: Yes (Death, Hospitalization)
  Sender: FDA-Public Use
  Company Number: GR-ABBOTT-09P-066-0575727-00

PATIENT
  Age: 75 Year
  Sex: Female
  Weight: 72.5 kg

DRUGS (15)
  1. ZEMPLAR [Suspect]
     Indication: HYPERPARATHYROIDISM SECONDARY
     Route: 042
     Dates: start: 20080513, end: 20090612
  2. EPREX 40000 [Concomitant]
     Indication: DRUG USE FOR UNKNOWN INDICATION
  3. FERROVINE [Concomitant]
     Indication: DRUG USE FOR UNKNOWN INDICATION
  4. SUPERAMIN [Concomitant]
     Indication: DRUG USE FOR UNKNOWN INDICATION
  5. NEUROBION [Concomitant]
     Indication: DRUG USE FOR UNKNOWN INDICATION
  6. TITRALAC [Concomitant]
     Indication: DRUG USE FOR UNKNOWN INDICATION
  7. MIMPARA [Concomitant]
     Indication: DRUG USE FOR UNKNOWN INDICATION
  8. RENAGEL [Concomitant]
     Indication: DRUG USE FOR UNKNOWN INDICATION
  9. FILICINE [Concomitant]
     Indication: DRUG USE FOR UNKNOWN INDICATION
  10. PLAVIX [Concomitant]
     Indication: DRUG USE FOR UNKNOWN INDICATION
  11. LASIX [Concomitant]
     Indication: DRUG USE FOR UNKNOWN INDICATION
  12. DIGOXIN [Concomitant]
     Indication: DRUG USE FOR UNKNOWN INDICATION
  13. TRIATEC [Concomitant]
     Indication: DRUG USE FOR UNKNOWN INDICATION
  14. DILATREND [Concomitant]
     Indication: DRUG USE FOR UNKNOWN INDICATION
  15. T4 [Concomitant]
     Indication: DRUG USE FOR UNKNOWN INDICATION

REACTIONS (5)
  - CARDIO-RESPIRATORY ARREST [None]
  - FALL [None]
  - FEMUR FRACTURE [None]
  - HYPOPHAGIA [None]
  - MOBILITY DECREASED [None]
